FAERS Safety Report 6344504-3 (Version None)
Quarter: 2009Q3

REPORT INFORMATION
  Report Type: 
  Country: None (occurrence: None)
  Receive Date: 20090908
  Receipt Date: 20090902
  Transmission Date: 20100115
  Serious: Yes (Hospitalization, Other)
  Sender: FDA-Public Use
  Company Number: NL-ABBOTT-09P-114-0594902-00

PATIENT
  Sex: Male
  Weight: 80 kg

DRUGS (3)
  1. HUMIRA [Suspect]
     Indication: ANKYLOSING SPONDYLITIS
     Route: 058
     Dates: start: 20060501
  2. HUMIRA [Suspect]
     Dates: start: 20080101
  3. HUMIRA [Suspect]

REACTIONS (7)
  - ARRHYTHMIA SUPRAVENTRICULAR [None]
  - BLOOD URINE PRESENT [None]
  - EXCORIATION [None]
  - FATIGUE [None]
  - GINGIVITIS [None]
  - SKIN INFECTION [None]
  - TENDON RUPTURE [None]
